FAERS Safety Report 11128276 (Version 2)
Quarter: 2015Q2

REPORT INFORMATION
  Report Type: Spontaneous
  Country: GB (occurrence: GB)
  Receive Date: 20150521
  Receipt Date: 20150529
  Transmission Date: 20150821
  Serious: Yes (Life-Threatening)
  Sender: FDA-Public Use
  Company Number: GB-PFIZER INC-2015170065

PATIENT
  Age: 55 Year
  Sex: Male
  Weight: 74 kg

DRUGS (7)
  1. DEXAMETHASONE. [Concomitant]
     Active Substance: DEXAMETHASONE
     Dosage: TOTAL DAILY DOSE: 8 MG/2 DAYS EACH CAPSULE
     Route: 048
     Dates: start: 20100525, end: 20100709
  2. DOMPERIDONE [Concomitant]
     Active Substance: DOMPERIDONE
     Dosage: 10-20 MG AS NEEDED
     Route: 048
     Dates: start: 20100525, end: 20100713
  3. LANSOPRAZOLE. [Concomitant]
     Active Substance: LANSOPRAZOLE
     Dosage: UNK
     Route: 048
     Dates: start: 20100525, end: 20100727
  4. EPIRUBICIN HCL [Suspect]
     Active Substance: EPIRUBICIN HYDROCHLORIDE
     Indication: ADENOCARCINOMA GASTRIC
     Dosage: 95 MG, (06JUL2010: MOST RECENT DOSE)
     Route: 042
     Dates: start: 20100525
  5. AVASTIN [Suspect]
     Active Substance: BEVACIZUMAB
     Indication: ADENOCARCINOMA GASTRIC
     Dosage: 562.5 MG, (06JUL2010: MOST RECENT DOSE)
     Route: 042
     Dates: start: 20100525
  6. CISPLATIN. [Suspect]
     Active Substance: CISPLATIN
     Indication: ADENOCARCINOMA GASTRIC
     Dosage: 113 MG, (06JUL2010: MOST RECENT DOSE)
     Route: 042
     Dates: start: 20100525
  7. XELODA [Suspect]
     Active Substance: CAPECITABINE
     Indication: ADENOCARCINOMA GASTRIC
     Dosage: 52.5 MG, (06JUL2010: MOST RECENT DOSE)
     Route: 048
     Dates: start: 20100525

REACTIONS (2)
  - Pulmonary embolism [Not Recovered/Not Resolved]
  - Portal vein thrombosis [Not Recovered/Not Resolved]

NARRATIVE: CASE EVENT DATE: 20100727
